FAERS Safety Report 9498805 (Version 2)
Quarter: 2013Q3

REPORT INFORMATION
  Report Type: Report from Study
  Country: AR (occurrence: AR)
  Receive Date: 20130904
  Receipt Date: 20130925
  Transmission Date: 20140515
  Serious: Yes (Other)
  Sender: FDA-Public Use
  Company Number: AR-ROCHE-1268829

PATIENT
  Age: 76 Year
  Sex: Female

DRUGS (1)
  1. RANIBIZUMAB [Suspect]
     Indication: CORNEAL DISORDER
     Route: 050
     Dates: start: 2011

REACTIONS (3)
  - Cardiac murmur [Not Recovered/Not Resolved]
  - Visual impairment [Recovering/Resolving]
  - Drug ineffective [Unknown]
